FAERS Safety Report 5048188-6 (Version None)
Quarter: 2006Q3

REPORT INFORMATION
  Report Type: 
  Country: None (occurrence: None)
  Receive Date: 20060711
  Receipt Date: 20060629
  Transmission Date: 20061208
  Serious: Yes (Other)
  Sender: FDA-Public Use
  Company Number: DE-ROCHE-453405

PATIENT
  Sex: Female

DRUGS (2)
  1. CYMEVENE [Suspect]
     Dosage: INITIAL DOSE.
     Route: 065
  2. CYMEVENE [Suspect]
     Dosage: DOSAGE REDUCED.
     Route: 065

REACTIONS (1)
  - DEAFNESS [None]
